FAERS Safety Report 9261542 (Version 1)
Quarter: 2013Q2

REPORT INFORMATION
  Report Type: Spontaneous
  Country: BR (occurrence: BR)
  Receive Date: 20130429
  Receipt Date: 20130429
  Transmission Date: 20140414
  Serious: Yes (Hospitalization, Other)
  Sender: FDA-Public Use
  Company Number: PHHY2013BR039678

PATIENT
  Sex: Male

DRUGS (8)
  1. RASILEZ AMLO [Suspect]
     Indication: HYPERTENSION
     Dosage: 1 DF (300MG ALISKIREN/ UNK AMLO), UNK
  2. APRESOLIN [Suspect]
     Indication: HYPERTENSION
     Dosage: 50 MG, UNK (EVERY 8 HOURS)
  3. DIOVAN [Suspect]
     Dosage: 320 MG, UNK
  4. FORASEQ [Suspect]
     Dosage: 1 DF (400 MCG FORM, 12 MCG BUDE), UNK
  5. ENALAPRIL [Suspect]
     Indication: HYPERTENSION
     Dosage: 20 MG, UNK
  6. ATENSINA [Suspect]
     Indication: HYPERTENSION
     Dosage: 200 MG, UNK
  7. SELOZOK [Suspect]
     Indication: HYPERTENSION
     Dosage: 50 MG, UNK
  8. PRESSAT [Suspect]
     Indication: HYPERTENSION
     Dosage: 10 MG, UNK

REACTIONS (6)
  - Hypertensive crisis [Unknown]
  - Chronic obstructive pulmonary disease [Unknown]
  - Drug dependence [Unknown]
  - Renal failure chronic [Unknown]
  - Drug dose omission [None]
  - Haemodialysis [None]
